FAERS Safety Report 8985817 (Version 1)
Quarter: 2012Q4

REPORT INFORMATION
  Report Type: 
  Country: GB (occurrence: GB)
  Receive Date: 20121226
  Receipt Date: 20121226
  Transmission Date: 20130627
  Serious: Yes (Death)
  Sender: FDA-Public Use
  Company Number: GB-ASTRAZENECA-2012SE95263

PATIENT
  Age: 31 Year
  Sex: Male

DRUGS (8)
  1. QUETIAPINE [Suspect]
     Indication: DEPRESSION
     Dosage: 450 MG DAILY, IN DIVIDED DOSES
     Route: 048
     Dates: start: 2011
  2. QUETIAPINE [Suspect]
     Indication: DEPRESSION
     Route: 048
     Dates: start: 20120824
  3. QUETIAPINE [Suspect]
     Indication: DEPRESSION
     Route: 048
     Dates: start: 20120822
  4. MIRTAZAPINE [Suspect]
     Indication: DEPRESSION
     Route: 048
     Dates: start: 20120824
  5. MIRTAZAPINE [Suspect]
     Indication: DEPRESSION
     Route: 048
     Dates: start: 2012
  6. CIPRALEX [Suspect]
     Indication: DEPRESSION
     Route: 048
     Dates: start: 20120823
  7. CIPRALEX [Suspect]
     Indication: DEPRESSION
     Route: 048
     Dates: start: 20120824
  8. DIAZEPAM [Concomitant]

REACTIONS (2)
  - Overdose [Fatal]
  - Accidental death [Fatal]
